FAERS Safety Report 14313735 (Version 2)
Quarter: 2017Q4

REPORT INFORMATION
  Report Type: Spontaneous
  Country: ZA (occurrence: ZA)
  Receive Date: 20171221
  Receipt Date: 20171227
  Transmission Date: 20180321
  Serious: Yes (Death)
  Sender: FDA-Public Use
  Company Number: ZA-PFIZER INC-2017539392

PATIENT
  Age: 71 Year
  Sex: Male

DRUGS (17)
  1. TRAMACET [Suspect]
     Active Substance: ACETAMINOPHEN\TRAMADOL
     Dosage: UNK
     Route: 065
  2. ASPAVOR [Suspect]
     Active Substance: ATORVASTATIN
     Dosage: UNK
     Route: 065
  3. CORDARONE [Suspect]
     Active Substance: AMIODARONE HYDROCHLORIDE
     Dosage: UNK
     Route: 065
  4. LENAPAIN [Suspect]
     Active Substance: ACETAMINOPHEN\CAFFEINE\CODEINE\DOXYLAMINE
     Dosage: UNK
     Route: 065
  5. GLUCOPHAGE [Suspect]
     Active Substance: METFORMIN HYDROCHLORIDE
     Dosage: UNK
     Route: 065
  6. DYNA GLICLAZIDE [Suspect]
     Active Substance: GLICLAZIDE
     Dosage: UNK
     Route: 065
  7. LASIX [Suspect]
     Active Substance: FUROSEMIDE
     Dosage: UNK
     Route: 065
  8. FORTZAAR [Suspect]
     Active Substance: HYDROCHLOROTHIAZIDE\LOSARTAN POTASSIUM
     Dosage: UNK
     Route: 065
  9. CIPLA WARFARIN [Suspect]
     Active Substance: WARFARIN
     Dosage: UNK
     Route: 065
  10. TOPZOLE [Suspect]
     Active Substance: PANTOPRAZOLE SODIUM
     Dosage: UNK
     Route: 048
  11. CLOPAMON [Suspect]
     Active Substance: METOCLOPRAMIDE
     Dosage: UNK
     Route: 065
  12. ANTISTAX /01364605/ [Suspect]
     Active Substance: HERBALS\VITIS VINIFERA LEAF
     Dosage: UNK
     Route: 065
  13. CARLOC [Suspect]
     Active Substance: CARVEDILOL
     Dosage: UNK
     Route: 065
  14. FOLIC ACID. [Suspect]
     Active Substance: FOLIC ACID
     Dosage: UNK
     Route: 065
  15. BAYER ASPIRIN CARDIO [Suspect]
     Active Substance: ASPIRIN
     Dosage: UNK
     Route: 065
  16. DORMONOCT [Suspect]
     Active Substance: LOPRAZOLAM
     Dosage: UNK
     Route: 065
  17. PROCYDIN /00042702/ [Suspect]
     Active Substance: CYPROHEPTADINE HYDROCHLORIDE
     Dosage: UNK
     Route: 065

REACTIONS (1)
  - Death [Fatal]
